FAERS Safety Report 24153279 (Version 1)
Quarter: 2024Q3

REPORT INFORMATION
  Report Type: Spontaneous
  Country: US (occurrence: None)
  Receive Date: 20240730
  Receipt Date: 20240730
  Transmission Date: 20241016
  Serious: No
  Sender: Public
  Company Number: None

PATIENT
  Age: 30 Year
  Sex: Male

DRUGS (1)
  1. TALTZ [Suspect]
     Active Substance: IXEKIZUMAB
     Indication: Psoriasis
     Dosage: OTHER FREQUENCY : Q2WEEKS;?
     Route: 058

REACTIONS (4)
  - Urticaria [None]
  - Pruritus [None]
  - Loss of personal independence in daily activities [None]
  - Hypersensitivity [None]

NARRATIVE: CASE EVENT DATE: 20240727
